FAERS Safety Report 10426928 (Version 1)
Quarter: 2014Q3

REPORT INFORMATION
  Report Type: Spontaneous
  Country: BE (occurrence: BE)
  Receive Date: 20140903
  Receipt Date: 20140903
  Transmission Date: 20150326
  Serious: Yes (Hospitalization)
  Sender: FDA-Public Use
  Company Number: BE-SA-2014SA116317

PATIENT
  Age: 64 Year
  Sex: Female

DRUGS (9)
  1. ELOXATIN [Suspect]
     Active Substance: OXALIPLATIN
     Indication: COLECTOMY
     Route: 042
     Dates: start: 20140512
  2. L-THYROXINE [Concomitant]
     Active Substance: LEVOTHYROXINE
     Indication: HYPOTHYROIDISM
     Route: 048
  3. FLURACEDYL [Concomitant]
     Active Substance: FLUOROURACIL
     Dosage: EVERY 2 WEEKS
     Route: 042
     Dates: start: 20140512
  4. ALL OTHER THERAPEUTIC PRODUCTS [Concomitant]
     Active Substance: UNSPECIFIED INGREDIENT
     Route: 031
  5. LITICAN [Concomitant]
     Active Substance: ALIZAPRIDE HYDROCHLORIDE
     Route: 042
  6. LUMIGAN [Concomitant]
     Active Substance: BIMATOPROST
     Route: 031
  7. PANTOMED [Concomitant]
     Active Substance: DEXPANTHENOL
     Route: 048
  8. ZOFRAN [Suspect]
     Active Substance: ONDANSETRON HYDROCHLORIDE
     Indication: NAUSEA
     Dosage: EVERY 2 WEEKS
     Route: 042
     Dates: start: 20140512
  9. CALCIUM FOLINATE [Concomitant]
     Active Substance: LEUCOVORIN CALCIUM
     Dosage: EVERY 2 WEEKS
     Route: 042
     Dates: start: 20140512

REACTIONS (2)
  - Joint range of motion decreased [Recovering/Resolving]
  - Aphasia [Recovering/Resolving]

NARRATIVE: CASE EVENT DATE: 20140526
